FAERS Safety Report 12099995 (Version 1)
Quarter: 2016Q1

REPORT INFORMATION
  Report Type: Spontaneous
  Country: IN (occurrence: IN)
  Receive Date: 20160222
  Receipt Date: 20160222
  Transmission Date: 20160526
  Serious: Yes (Life-Threatening, Hospitalization)
  Sender: FDA-Public Use
  Company Number: IN-ASTRAZENECA-2016SE15873

PATIENT
  Age: 32 Year
  Sex: Female

DRUGS (1)
  1. QUETIAPINE FUMARATE. [Suspect]
     Active Substance: QUETIAPINE FUMARATE
     Dosage: 30 TABLETS: 30X200 MG: 6000 MG
     Route: 048

REACTIONS (6)
  - Respiratory acidosis [Recovered/Resolved]
  - Overdose [Recovered/Resolved]
  - Toxicity to various agents [Recovered/Resolved]
  - Exposure during pregnancy [Unknown]
  - Somnolence [Recovered/Resolved]
  - Electrocardiogram QT prolonged [Recovered/Resolved]
